FAERS Safety Report 6521353-4 (Version None)
Quarter: 2009Q4

REPORT INFORMATION
  Report Type: 
  Country: None (occurrence: None)
  Receive Date: 20091230
  Receipt Date: 20090119
  Transmission Date: 20100525
  Serious: Yes (Death, Other)
  Sender: FDA-Public Use
  Company Number: US-PFIZER INC-2009157028

PATIENT
  Age: 14 Year
  Sex: Male

DRUGS (7)
  1. HYDROCORTISONE AND HYDROCORTISONE ACETATE AND HYDROCORTISONE CIPIONATE [Suspect]
     Indication: LYMPHOCYTIC LEUKAEMIA
  2. METHOTREXATE SODIUM [Suspect]
     Indication: LYMPHOCYTIC LEUKAEMIA
     Route: 037
  3. CYTARABINE [Suspect]
     Indication: LYMPHOCYTIC LEUKAEMIA
  4. CLOFARABINE [Suspect]
     Indication: LYMPHOCYTIC LEUKAEMIA
  5. FLUDARABINE [Suspect]
     Indication: BONE MARROW TRANSPLANT
     Dosage: UNK
  6. MELPHALAN [Suspect]
     Indication: BONE MARROW TRANSPLANT
  7. THIOTEPA [Suspect]
     Indication: BONE MARROW TRANSPLANT

REACTIONS (3)
  - ENCEPHALOPATHY [None]
  - MYELOPATHY [None]
  - NEUROPATHY PERIPHERAL [None]
